FAERS Safety Report 10832047 (Version 1)
Quarter: 2015Q1

REPORT INFORMATION
  Report Type: Spontaneous
  Country: US (occurrence: US)
  Receive Date: 20150219
  Receipt Date: 20150219
  Transmission Date: 20150721
  Serious: No
  Sender: FDA-Public Use
  Company Number: US-ASTRAZENECA-2015SE13940

PATIENT
  Sex: Female
  Weight: 90.7 kg

DRUGS (1)
  1. ANASTOZOLE [Suspect]
     Active Substance: ANASTROZOLE
     Indication: BREAST LUMP REMOVAL
     Route: 048
     Dates: start: 2012

REACTIONS (1)
  - Coeliac disease [Unknown]
